FAERS Safety Report 4907128-8 (Version None)
Quarter: 2006Q1

REPORT INFORMATION
  Report Type: 
  Country: None (occurrence: None)
  Receive Date: 20060206
  Receipt Date: 20060124
  Transmission Date: 20060701
  Serious: Yes (Other)
  Sender: FDA-Public Use
  Company Number: CH-GDP-0612696

PATIENT
  Age: 40 Year
  Sex: Female

DRUGS (2)
  1. DIFFERIN [Suspect]
     Dosage: 2 G QD TP
     Route: 061
  2. VENLAFAXINE HCL [Concomitant]

REACTIONS (3)
  - CONDITION AGGRAVATED [None]
  - DEPRESSION [None]
  - EPISTAXIS [None]
